FAERS Safety Report 14607063 (Version 1)
Quarter: 2018Q1

REPORT INFORMATION
  Report Type: Spontaneous
  Country: US (occurrence: US)
  Receive Date: 20180306
  Receipt Date: 20180306
  Transmission Date: 20180509
  Serious: Yes (Disabling, Other)
  Sender: FDA-Public Use
  Company Number: None

PATIENT
  Age: 56 Year
  Sex: Female
  Weight: 63.5 kg

DRUGS (6)
  1. LORATADINE DMS [Concomitant]
  2. HYDROXZINE HCL [Concomitant]
  3. CIPROFLOXACIN 250MG TAB [Suspect]
     Active Substance: CIPROFLOXACIN
     Indication: PRODUCT USED FOR UNKNOWN INDICATION
     Dosage: ROUTE - PO (10 DAYS)
     Route: 048
     Dates: start: 20180110, end: 20180115
  4. VITAMIN C [Concomitant]
     Active Substance: ASCORBIC ACID
  5. PA ZEOD. 7% EYE DROPS [Concomitant]
  6. ONE A DAY VITAMINS (WOMEN 50+) [Concomitant]

REACTIONS (15)
  - Cardiac flutter [None]
  - Eye discharge [None]
  - Pruritus [None]
  - Breast swelling [None]
  - Restlessness [None]
  - Back pain [None]
  - Headache [None]
  - Burning sensation [None]
  - Fatigue [None]
  - Haemorrhage [None]
  - Pain [None]
  - Throat irritation [None]
  - Night sweats [None]
  - Dry mouth [None]
  - Abdominal pain upper [None]

NARRATIVE: CASE EVENT DATE: 20180111
